FAERS Safety Report 14789215 (Version 2)
Quarter: 2018Q2

REPORT INFORMATION
  Report Type: Report from Study
  Country: US (occurrence: US)
  Receive Date: 20180423
  Receipt Date: 20180620
  Transmission Date: 20180711
  Serious: Yes (Life-Threatening, Hospitalization, Other)
  Sender: FDA-Public Use
  Company Number: PHHY2018US068066

PATIENT
  Age: 8 Year
  Sex: Male
  Weight: 28.3 kg

DRUGS (13)
  1. ALLOPURINOL. [Suspect]
     Active Substance: ALLOPURINOL
     Indication: TUMOUR LYSIS SYNDROME
     Dosage: UNK
     Route: 048
     Dates: start: 20180402
  2. CALCIUM GLUCONATE. [Concomitant]
     Active Substance: CALCIUM GLUCONATE
     Indication: PRODUCT USED FOR UNKNOWN INDICATION
     Dosage: 1000 MG, UNK
     Route: 042
     Dates: start: 20180410
  3. NOREPINEPHRINE. [Concomitant]
     Active Substance: NOREPINEPHRINE
     Indication: PRODUCT USED FOR UNKNOWN INDICATION
     Dosage: 0.1MCG/KG/MIN
     Route: 042
     Dates: start: 20180409, end: 20180410
  4. TYLENOL [Concomitant]
     Active Substance: ACETAMINOPHEN
     Dosage: UNK, Q4H AS NEEDED
     Route: 048
  5. VITAMIN K [Concomitant]
     Active Substance: PHYTONADIONE
     Indication: PRODUCT USED FOR UNKNOWN INDICATION
     Dosage: 2.5 MG, UNK
     Route: 048
     Dates: start: 20180413
  6. BACTRIM [Concomitant]
     Active Substance: SULFAMETHOXAZOLE\TRIMETHOPRIM
     Indication: ANTIBIOTIC PROPHYLAXIS
     Dosage: 65.6 MG, BID (QMONDAY/TUESDAY)
     Route: 048
     Dates: start: 20170120
  7. KYMRIAH [Suspect]
     Active Substance: TISAGENLECLEUCEL
     Indication: ACUTE LYMPHOCYTIC LEUKAEMIA
     Dosage: 0.7119X10^8
     Route: 042
     Dates: start: 20180403
  8. GENTAMICIN. [Concomitant]
     Active Substance: GENTAMICIN
     Dosage: 70 MG, Q8H
     Route: 042
     Dates: start: 20180409, end: 20180410
  9. VORICONAZOLE. [Concomitant]
     Active Substance: VORICONAZOLE
     Indication: ANTIFUNGAL PROPHYLAXIS
     Dosage: 200 MG, BID
     Route: 048
     Dates: start: 20180403
  10. CEFEPIME [Concomitant]
     Active Substance: CEFEPIME HYDROCHLORIDE
     Indication: PRODUCT USED FOR UNKNOWN INDICATION
     Dosage: 1400 MG, Q8H
     Route: 042
     Dates: start: 20180407, end: 20180412
  11. GENTAMICIN. [Concomitant]
     Active Substance: GENTAMICIN
     Indication: PRODUCT USED FOR UNKNOWN INDICATION
     Dosage: 190 MG, UNK
     Route: 042
     Dates: start: 20180407
  12. CASPOFUNGIN [Concomitant]
     Active Substance: CASPOFUNGIN
     Indication: PRODUCT USED FOR UNKNOWN INDICATION
     Dosage: 67 MG, UNK
     Route: 042
     Dates: start: 20180412
  13. TYLENOL [Concomitant]
     Active Substance: ACETAMINOPHEN
     Indication: PYREXIA
     Dosage: 420 MG, Q6H
     Route: 042
     Dates: start: 20180411, end: 20180412

REACTIONS (25)
  - Cytokine release syndrome [Recovered/Resolved]
  - Blood antidiuretic hormone abnormal [Recovered/Resolved]
  - International normalised ratio increased [Recovering/Resolving]
  - Hypotension [Recovered/Resolved]
  - Pyrexia [Recovered/Resolved]
  - Conjunctival haemorrhage [Not Recovered/Not Resolved]
  - Hyponatraemia [Recovered/Resolved]
  - Myalgia [Not Recovered/Not Resolved]
  - Fluid retention [Unknown]
  - Hypoxia [Recovered/Resolved]
  - Viral infection [Unknown]
  - Hypokalaemia [Recovered/Resolved]
  - Activated partial thromboplastin time prolonged [Recovering/Resolving]
  - Vomiting [Recovered/Resolved]
  - Hypophosphataemia [Recovered/Resolved]
  - Cough [Unknown]
  - Febrile neutropenia [Recovered/Resolved]
  - Fungal infection [Recovered/Resolved]
  - Chills [Recovered/Resolved]
  - Acidosis [Recovered/Resolved]
  - Aspartate aminotransferase increased [Recovered/Resolved]
  - Clostridium difficile colitis [Recovering/Resolving]
  - Discomfort [Recovered/Resolved]
  - Fatigue [Not Recovered/Not Resolved]
  - Alanine aminotransferase increased [Recovered/Resolved]

NARRATIVE: CASE EVENT DATE: 20180407
